FAERS Safety Report 4652869-3 (Version None)
Quarter: 2005Q2

REPORT INFORMATION
  Report Type: 
  Country: None (occurrence: None)
  Receive Date: 20050502
  Receipt Date: 20050419
  Transmission Date: 20051028
  Serious: Yes (Other)
  Sender: FDA-Public Use
  Company Number: B0379126A

PATIENT
  Age: 18 Year

DRUGS (1)
  1. AUGMENTIN '250' [Suspect]
     Indication: RESPIRATORY DISORDER
     Dosage: 1500 MG / PER DAY /

REACTIONS (5)
  - DRUG INTERACTION [None]
  - DRUG TOXICITY [None]
  - HEPATITIS CHOLESTATIC [None]
  - HEPATOCELLULAR DAMAGE [None]
  - THERAPY NON-RESPONDER [None]
